FAERS Safety Report 5554872-8 (Version None)
Quarter: 2007Q4

REPORT INFORMATION
  Report Type: 
  Country: None (occurrence: None)
  Receive Date: 20071213
  Receipt Date: 20071203
  Transmission Date: 20080405
  Serious: Yes (Other)
  Sender: FDA-Public Use
  Company Number: US-ELI_LILLY_AND_COMPANY-US200712000282

PATIENT
  Sex: Female

DRUGS (11)
  1. CYMBALTA [Suspect]
     Dosage: 60 MG, UNK
  2. ZYPREXA [Suspect]
     Dosage: 1 D/F, UNK
  3. DUONEB [Concomitant]
  4. LIBRIUM [Concomitant]
  5. LUVOX [Concomitant]
  6. LASIX [Concomitant]
  7. LYRICA [Concomitant]
  8. SEROQUEL [Concomitant]
  9. COUMADIN [Concomitant]
  10. ANTIBIOTICS [Concomitant]
  11. HYDROXYZINE [Concomitant]

REACTIONS (1)
  - GASTROINTESTINAL TUBE INSERTION [None]
